FAERS Safety Report 4809869-X (Version None)
Quarter: 2005Q4

REPORT INFORMATION
  Report Type: 
  Country: None (occurrence: None)
  Receive Date: 20051024
  Receipt Date: 20051024
  Transmission Date: 20060501
  Serious: Yes (Hospitalization)
  Sender: FDA-Public Use
  Company Number: None

PATIENT
  Age: 69 Year
  Sex: Female

DRUGS (14)
  1. ENALAPRIL [Suspect]
     Dosage: 5MG PO BID
     Route: 048
     Dates: start: 20020829, end: 20050812
  2. SULINDAC [Suspect]
     Dosage: 200MG PO BID
     Route: 048
     Dates: start: 20040504, end: 20050812
  3. ALBUTEROL [Concomitant]
  4. ALENDRONATE [Concomitant]
  5. ANASTROZOLE [Concomitant]
  6. ENALAPRIL [Concomitant]
  7. ESTROGEN VAGINAL CREAM [Concomitant]
  8. HYDROCHLOROTHIAZIDE [Concomitant]
  9. IRBESARTAN [Concomitant]
  10. LEVOTHYROXINE [Concomitant]
  11. MECLIZINE [Concomitant]
  12. METFORMIN HCL [Concomitant]
  13. OMEPRAZOLE [Concomitant]
  14. SULINDAC [Concomitant]

REACTIONS (2)
  - HAEMODIALYSIS [None]
  - RENAL FAILURE ACUTE [None]
